FAERS Safety Report 13407150 (Version 2)
Quarter: 2017Q2

REPORT INFORMATION
  Report Type: Spontaneous
  Country: US (occurrence: US)
  Receive Date: 20170405
  Receipt Date: 20170425
  Transmission Date: 20170830
  Serious: Yes (Other)
  Sender: FDA-Public Use
  Company Number: US-LUNDBECK-DKLU2028703

PATIENT
  Sex: Male

DRUGS (8)
  1. DEPAKOTE [Concomitant]
     Active Substance: DIVALPROEX SODIUM
     Indication: GENERALISED TONIC-CLONIC SEIZURE
     Route: 048
  2. ONFI [Suspect]
     Active Substance: CLOBAZAM
     Dosage: 10-30 MG
     Route: 065
     Dates: start: 201405
  3. LYRICA [Suspect]
     Active Substance: PREGABALIN
     Indication: SEIZURE
     Route: 048
  4. ATIVAN [Concomitant]
     Active Substance: LORAZEPAM
     Indication: INSOMNIA
  5. LYRICA [Suspect]
     Active Substance: PREGABALIN
     Route: 065
  6. ATIVAN [Concomitant]
     Active Substance: LORAZEPAM
     Indication: SEIZURE
     Route: 048
  7. ONFI [Suspect]
     Active Substance: CLOBAZAM
     Indication: PARTIAL SEIZURES
     Dosage: 10-30 MG
     Route: 048
     Dates: start: 201405
  8. LYRICA [Suspect]
     Active Substance: PREGABALIN
     Route: 065

REACTIONS (2)
  - Seizure [Recovering/Resolving]
  - Anorgasmia [Unknown]
